FAERS Safety Report 4862036-6 (Version None)
Quarter: 2005Q4

REPORT INFORMATION
  Report Type: 
  Country: None (occurrence: None)
  Receive Date: 20051221
  Receipt Date: 20051212
  Transmission Date: 20060501
  Serious: Yes (Hospitalization)
  Sender: FDA-Public Use
  Company Number: NL-JNJFOC-20051202882

PATIENT
  Sex: Female
  Weight: 53.5 kg

DRUGS (4)
  1. INFLIXIMAB [Suspect]
     Indication: CROHN'S DISEASE
     Route: 042
  2. PREDNISON [Concomitant]
     Indication: CROHN'S DISEASE
     Route: 065
  3. ENTOCORT [Concomitant]
     Indication: CROHN'S DISEASE
     Route: 065
  4. ACTONEL [Concomitant]
     Indication: OSTEOPOROSIS
     Route: 065

REACTIONS (1)
  - PANCREATIC CARCINOMA [None]
